FAERS Safety Report 23951252 (Version 1)
Quarter: 2024Q2

REPORT INFORMATION
  Report Type: Spontaneous
  Country: US (occurrence: None)
  Receive Date: 20240607
  Receipt Date: 20240607
  Transmission Date: 20240716
  Serious: No
  Sender: FDA-Public Use
  Company Number: None

PATIENT

DRUGS (2)
  1. LABETALOL [Suspect]
     Active Substance: LABETALOL\LABETALOL HYDROCHLORIDE
  2. LAMOTRIGINE [Suspect]
     Active Substance: LAMOTRIGINE

REACTIONS (20)
  - Back pain [None]
  - Abdominal pain upper [None]
  - Dry eye [None]
  - Ocular hyperaemia [None]
  - Eye irritation [None]
  - Vision blurred [None]
  - Vomiting [None]
  - Diarrhoea [None]
  - Headache [None]
  - Rhinorrhoea [None]
  - Neck pain [None]
  - Confusional state [None]
  - Hallucination [None]
  - Mood swings [None]
  - Asthenia [None]
  - Fatigue [None]
  - Fall [None]
  - Product dispensing error [None]
  - Wrong product administered [None]
  - Product label confusion [None]

NARRATIVE: CASE EVENT DATE: 20240419
